FAERS Safety Report 15101775 (Version 1)
Quarter: 2018Q3

REPORT INFORMATION
  Report Type: Spontaneous
  Country: US (occurrence: US)
  Receive Date: 20180703
  Receipt Date: 20180703
  Transmission Date: 20181010
  Serious: No
  Sender: FDA-Public Use
  Company Number: US-AVEDRO-AVE-2018-0095-AE

PATIENT
  Age: 30 Year
  Sex: Male

DRUGS (3)
  1. PHOTREXA VISCOUS [Suspect]
     Active Substance: RIBOFLAVIN 5^-PHOSPHATE SODIUM
     Dosage: 2 DROPS EVERY 2 MINUTES FOR 50 MINUTES DURING IRRADIATION PERIOD
     Route: 047
     Dates: start: 20180406, end: 20180406
  2. PHOTREXA VISCOUS [Suspect]
     Active Substance: RIBOFLAVIN 5^-PHOSPHATE SODIUM
     Indication: PRODUCT USED FOR UNKNOWN INDICATION
     Dosage: 2 DROPS EVERY 2 MINUTES FOR 30 MINUTES (30 DROPS TOTAL) DURING INITIAL SOAK
     Route: 047
     Dates: start: 20180406, end: 20180406
  3. KXL SYSTEM [Suspect]
     Active Substance: DEVICE
     Indication: PRODUCT USED FOR UNKNOWN INDICATION
     Route: 047
     Dates: start: 20180406, end: 20180406

REACTIONS (3)
  - Inappropriate schedule of drug administration [Unknown]
  - Therapy cessation [Unknown]
  - No adverse event [Unknown]

NARRATIVE: CASE EVENT DATE: 20180406
